FAERS Safety Report 7161917-0 (Version None)
Quarter: 2010Q4

REPORT INFORMATION
  Report Type: 
  Country: None (occurrence: None)
  Receive Date: 20101215
  Receipt Date: 20100719
  Transmission Date: 20110411
  Serious: Yes (Other)
  Sender: FDA-Public Use
  Company Number: BR-PFIZER INC-2010089738

PATIENT
  Age: 40 Year
  Sex: Female
  Weight: 80 kg

DRUGS (6)
  1. LYRICA [Suspect]
     Indication: FIBROMYALGIA
     Dosage: 75 MG, 1X/DAY
     Route: 048
     Dates: start: 20100715
  2. LYRICA [Suspect]
     Dosage: 75 MG, 2X/DAY, EVERY 12 HOURS
     Route: 048
     Dates: start: 20100718
  3. CYMBALTA [Concomitant]
     Indication: FIBROMYALGIA
     Dosage: UNK
     Dates: start: 20100715
  4. CYMBALTA [Concomitant]
     Indication: PAIN
  5. CYMBALTA [Concomitant]
     Indication: TENSION
  6. LISADOR [Concomitant]
     Dosage: UNK

REACTIONS (8)
  - DYSPNOEA [None]
  - NIGHTMARE [None]
  - PARALYSIS [None]
  - PULSE PRESSURE DECREASED [None]
  - SPEECH DISORDER [None]
  - SUFFOCATION FEELING [None]
  - SWOLLEN TONGUE [None]
  - TACHYCARDIA [None]
